FAERS Safety Report 4923994-4 (Version None)
Quarter: 2006Q1

REPORT INFORMATION
  Report Type: 
  Country: None (occurrence: None)
  Receive Date: 20060221
  Receipt Date: 20060208
  Transmission Date: 20060701
  Serious: Yes (Other)
  Sender: FDA-Public Use
  Company Number: 2006020657

PATIENT
  Age: 14 Year
  Sex: Female

DRUGS (1)
  1. CLINDAMYCIN HCL [Suspect]
     Indication: SINUSITIS
     Dosage: 150 MG (150 MG, UNKNOWN), ORAL
     Route: 048

REACTIONS (2)
  - HYPERSENSITIVITY [None]
  - REACTION TO COLOURING [None]
